FAERS Safety Report 11137595 (Version 1)
Quarter: 2015Q2

REPORT INFORMATION
  Report Type: Spontaneous
  Country: GB (occurrence: GB)
  Receive Date: 20150526
  Receipt Date: 20150526
  Transmission Date: 20150821
  Serious: Yes (Other)
  Sender: FDA-Public Use
  Company Number: PHHY2015GB060505

PATIENT
  Age: 31 Year
  Sex: Male

DRUGS (1)
  1. FILGRASTIM [Suspect]
     Active Substance: FILGRASTIM
     Indication: PRODUCT USED FOR UNKNOWN INDICATION
     Dosage: 300 UG, UNK
     Route: 058

REACTIONS (11)
  - Optic atrophy [Not Recovered/Not Resolved]
  - Cough [Unknown]
  - Aphagia [Unknown]
  - Visual acuity reduced [Not Recovered/Not Resolved]
  - Nystagmus [Unknown]
  - Neuromyelitis optica [Unknown]
  - Muscular weakness [Recovering/Resolving]
  - Faecal incontinence [Unknown]
  - Wrong drug administered [Unknown]
  - Acute disseminated encephalomyelitis [Unknown]
  - Urinary retention [Unknown]
